FAERS Safety Report 12358524 (Version 1)
Quarter: 2016Q2

REPORT INFORMATION
  Report Type: Spontaneous
  Country: US (occurrence: None)
  Receive Date: 20160511
  Receipt Date: 20160511
  Transmission Date: 20160815
  Serious: Yes (Hospitalization)
  Sender: FDA-Public Use
  Company Number: None

PATIENT
  Age: 68 Year
  Sex: Female
  Weight: 58.5 kg

DRUGS (1)
  1. NITROFURANTOIN. [Suspect]
     Active Substance: NITROFURANTOIN
     Indication: INFECTION
     Route: 048
     Dates: start: 20160412, end: 20160419

REACTIONS (3)
  - Rash [None]
  - Drug reaction with eosinophilia and systemic symptoms [None]
  - Eosinophilia [None]

NARRATIVE: CASE EVENT DATE: 20160425
